FAERS Safety Report 18220278 (Version 2)
Quarter: 2021Q3

REPORT INFORMATION
  Report Type: Spontaneous
  Country: US (occurrence: US)
  Receive Date: 20200902
  Receipt Date: 20210916
  Transmission Date: 20211014
  Serious: Yes (Other)
  Sender: FDA-Public Use
  Company Number: US-SA-2020SA234235

PATIENT
  Age: 81 Year
  Sex: Female

DRUGS (1)
  1. ZANTAC [Suspect]
     Active Substance: RANITIDINE HYDROCHLORIDE
     Indication: DYSPEPSIA
     Dosage: UNK, QD
     Dates: start: 200001, end: 201807

REACTIONS (2)
  - Lung neoplasm malignant [Unknown]
  - Neoplasm malignant [Unknown]

NARRATIVE: CASE EVENT DATE: 20180701
